FAERS Safety Report 17086357 (Version 1)
Quarter: 2019Q4

REPORT INFORMATION
  Report Type: Spontaneous
  Country: US (occurrence: US)
  Receive Date: 20191031
  Receipt Date: 20191031
  Transmission Date: 20200122
  Serious: Yes (Hospitalization)
  Sender: FDA-Public Use
  Company Number: None

PATIENT
  Age: 83 Year
  Sex: Female

DRUGS (1)
  1. TEMOZOLOMIDE 100 MG SANDOZ [Suspect]
     Active Substance: TEMOZOLOMIDE
     Indication: PRODUCT USED FOR UNKNOWN INDICATION
     Route: 048
     Dates: start: 20170113

REACTIONS (3)
  - Head injury [None]
  - Malignant nervous system neoplasm [None]
  - Fall [None]

NARRATIVE: CASE EVENT DATE: 20191015
